FAERS Safety Report 19124082 (Version 1)
Quarter: 2021Q2

REPORT INFORMATION
  Report Type: Report from Study
  Country: US (occurrence: US)
  Receive Date: 20210413
  Receipt Date: 20210413
  Transmission Date: 20210717
  Serious: Yes (Death, Hospitalization, Other)
  Sender: FDA-Public Use
  Company Number: US-ACADIA PHARMACEUTICALS INC.-ACA-2021-PIM-001104

PATIENT
  Sex: Female

DRUGS (4)
  1. PRIMIDONE. [Concomitant]
     Active Substance: PRIMIDONE
  2. PRAMIPEXOLE. [Concomitant]
     Active Substance: PRAMIPEXOLE
  3. SINEMET [Concomitant]
     Active Substance: CARBIDOPA\LEVODOPA
  4. NUPLAZID [Suspect]
     Active Substance: PIMAVANSERIN TARTRATE
     Indication: PARKINSON^S DISEASE
     Dosage: 34 MILLIGRAM, QD
     Route: 048
     Dates: end: 20210315

REACTIONS (4)
  - Septic shock [Recovered/Resolved]
  - Urinary tract infection [Recovered/Resolved]
  - Hypotension [Recovered/Resolved]
  - Rash [Unknown]
